FAERS Safety Report 22004516 (Version 1)
Quarter: 2023Q1

REPORT INFORMATION
  Report Type: Spontaneous
  Country: US (occurrence: US)
  Receive Date: 20230217
  Receipt Date: 20230217
  Transmission Date: 20230417
  Serious: Yes (Other)
  Sender: FDA-Public Use
  Company Number: US-BAYER-2023P010897

PATIENT
  Age: 8 Decade
  Sex: Male

DRUGS (2)
  1. ASPIRIN [Suspect]
     Active Substance: ASPIRIN
     Indication: Coronary artery disease
     Dosage: 81 MG, QD
  2. ASPIRIN [Suspect]
     Active Substance: ASPIRIN
     Indication: Stent placement

REACTIONS (2)
  - Upper gastrointestinal haemorrhage [None]
  - Gastritis erosive [None]
